FAERS Safety Report 4286533-X (Version None)
Quarter: 2004Q1

REPORT INFORMATION
  Report Type: 
  Country: None (occurrence: None)
  Receive Date: 20040204
  Receipt Date: 20040119
  Transmission Date: 20041129
  Serious: Yes (Death, Life-Threatening, Hospitalization)
  Sender: FDA-Public Use
  Company Number: DSA_23919_2004

PATIENT
  Age: 70 Year
  Sex: Female

DRUGS (9)
  1. ENALAPRIL MALEATE [Suspect]
     Indication: HYPERTENSION
  2. PRAZOSIN HYDROCHLORIDE [Concomitant]
  3. NICARDIPINE HYDROCHLORIDE [Concomitant]
  4. SOTALOL HYDROCHLORIDE [Concomitant]
  5. SPIRONOLACTONE [Concomitant]
  6. POTASSIUM CHLORIDE [Concomitant]
  7. OMEPRAZOLE (ASTRA) [Concomitant]
  8. ZOLPIDEM TARTRATE [Concomitant]
  9. ACETYLCYSTEINE [Concomitant]

REACTIONS (12)
  - ADRENAL CARCINOMA [None]
  - ADRENAL INSUFFICIENCY [None]
  - BLOOD POTASSIUM INCREASED [None]
  - CONDITION AGGRAVATED [None]
  - HAEMOGLOBIN DECREASED [None]
  - HYPOKALAEMIA [None]
  - HYPOVOLAEMIA [None]
  - LYMPHOCYTE COUNT DECREASED [None]
  - PLATELET COUNT DECREASED [None]
  - RENAL FAILURE [None]
  - SHOCK HAEMORRHAGIC [None]
  - TUMOUR NECROSIS [None]
